FAERS Safety Report 10630622 (Version 2)
Quarter: 2014Q4

REPORT INFORMATION
  Report Type: Spontaneous
  Country: US (occurrence: US)
  Receive Date: 20141205
  Receipt Date: 20141205
  Transmission Date: 20150529
  Serious: No
  Sender: FDA-Public Use
  Company Number: US-BRISTOL-MYERS SQUIBB COMPANY-21468053

PATIENT
  Age: 81 Year
  Sex: Female
  Weight: 92.97 kg

DRUGS (2)
  1. BYETTA [Suspect]
     Active Substance: EXENATIDE
     Indication: TYPE 2 DIABETES MELLITUS
     Dosage: INJECTIONS?ONGOING
     Route: 058
  2. METFORMIN HCL [Concomitant]
     Active Substance: METFORMIN HYDROCHLORIDE
     Indication: TYPE 2 DIABETES MELLITUS

REACTIONS (2)
  - Localised infection [Recovering/Resolving]
  - Feeling jittery [Not Recovered/Not Resolved]

NARRATIVE: CASE EVENT DATE: 2014
